FAERS Safety Report 22325563 (Version 1)
Quarter: 2023Q2

REPORT INFORMATION
  Report Type: Spontaneous
  Country: US (occurrence: None)
  Receive Date: 20230516
  Receipt Date: 20230516
  Transmission Date: 20230722
  Serious: No
  Sender: FDA-Public Use
  Company Number: None

PATIENT

DRUGS (2)
  1. PAXLOVID [Suspect]
     Active Substance: NIRMATRELVIR\RITONAVIR
  2. OXCARBAZEPINE [Suspect]
     Active Substance: OXCARBAZEPINE

REACTIONS (6)
  - Contraindicated product administered [None]
  - Dizziness [None]
  - Diplopia [None]
  - Vision blurred [None]
  - Product prescribing error [None]
  - Intentional overdose [None]

NARRATIVE: CASE EVENT DATE: 20230314
